FAERS Safety Report 10131338 (Version 4)
Quarter: 2014Q2

REPORT INFORMATION
  Report Type: Spontaneous
  Country: US (occurrence: US)
  Receive Date: 20140428
  Receipt Date: 20140620
  Transmission Date: 20141212
  Serious: Yes (Death, Hospitalization, Other)
  Sender: FDA-Public Use
  Company Number: PHEH2014US008124

PATIENT
  Age: 71 Year
  Sex: Female

DRUGS (1)
  1. ZOMETA [Suspect]
     Indication: BREAST CANCER METASTATIC
     Dosage: 4 MG, QW
     Route: 042
     Dates: start: 200207, end: 200702

REACTIONS (32)
  - Cardiopulmonary failure [Fatal]
  - Urosepsis [Unknown]
  - Cardiac failure congestive [Unknown]
  - Hypertension [Unknown]
  - Osteonecrosis of jaw [Unknown]
  - Supraventricular tachycardia [Unknown]
  - Excoriation [Unknown]
  - Polyuria [Unknown]
  - Bone lesion [Unknown]
  - Diastolic dysfunction [Unknown]
  - Dysuria [Unknown]
  - Urinary incontinence [Unknown]
  - Pulmonary hypertension [Unknown]
  - Confusional state [Unknown]
  - Vaginal discharge [Unknown]
  - Catheter site related reaction [Unknown]
  - Ventricular tachycardia [Unknown]
  - Asthma [Unknown]
  - Weight decreased [Unknown]
  - Hyponatraemia [Unknown]
  - Decreased appetite [Unknown]
  - Nausea [Unknown]
  - Night sweats [Unknown]
  - Wheezing [Unknown]
  - Pyrexia [Unknown]
  - Cough [Unknown]
  - Vomiting [Unknown]
  - Constipation [Unknown]
  - Chills [Unknown]
  - Insomnia [Unknown]
  - Burning sensation [Unknown]
  - Fatigue [Unknown]
